FAERS Safety Report 7320201-2 (Version None)
Quarter: 2011Q1

REPORT INFORMATION
  Report Type: 
  Country: None (occurrence: None)
  Receive Date: 20110214
  Receipt Date: 20110201
  Transmission Date: 20110831
  Serious: Yes (Other)
  Sender: FDA-Public Use
  Company Number: 022098

PATIENT
  Sex: Female
  Weight: 90.7 kg

DRUGS (3)
  1. MERCAPTOPURINE [Concomitant]
  2. CIMZIA [Suspect]
     Indication: CROHN'S DISEASE
     Dosage: SUBCUTANEOUS
     Route: 058
     Dates: start: 20100415
  3. ZOLOFT [Concomitant]

REACTIONS (9)
  - STOMATITIS [None]
  - IMMUNOSUPPRESSION [None]
  - SKIN DISORDER [None]
  - HERPES ZOSTER [None]
  - STAPHYLOCOCCAL INFECTION [None]
  - APHTHOUS STOMATITIS [None]
  - GENITAL HAEMORRHAGE [None]
  - RASH [None]
  - DRUG HYPERSENSITIVITY [None]
